FAERS Safety Report 16084618 (Version 3)
Quarter: 2019Q2

REPORT INFORMATION
  Report Type: Spontaneous
  Country: DE (occurrence: DE)
  Receive Date: 20190318
  Receipt Date: 20190420
  Transmission Date: 20190711
  Serious: Yes (Death, Hospitalization, Other)
  Sender: FDA-Public Use
  Company Number: DE-B.I. PHARMACEUTICALS,INC./RIDGEFIELD-2019-BI-011924

PATIENT
  Age: 84 Year
  Sex: Male
  Weight: 60 kg

DRUGS (4)
  1. PRADAXA [Suspect]
     Active Substance: DABIGATRAN ETEXILATE MESYLATE
     Route: 065
  2. TORASEMID [Concomitant]
     Active Substance: TORSEMIDE
     Indication: OEDEMA PERIPHERAL
     Route: 065
  3. PRADAXA [Suspect]
     Active Substance: DABIGATRAN ETEXILATE MESYLATE
     Indication: PRODUCT USED FOR UNKNOWN INDICATION
     Route: 065
  4. JUNIK [Concomitant]
     Active Substance: BECLOMETHASONE DIPROPIONATE
     Indication: OBSTRUCTIVE AIRWAYS DISORDER
     Route: 065

REACTIONS (17)
  - Ascites [Unknown]
  - Dyspnoea [Unknown]
  - Multiple organ dysfunction syndrome [Fatal]
  - Thrombin time abnormal [Unknown]
  - Hepatorenal syndrome [Unknown]
  - Haemorrhage [Recovered/Resolved]
  - Fall [Unknown]
  - Skin haemorrhage [Recovered/Resolved]
  - Haematuria [Unknown]
  - Skin haemorrhage [Unknown]
  - Anaemia [Unknown]
  - Haematuria [Recovered/Resolved]
  - Epistaxis [Recovered/Resolved]
  - Prothrombin time abnormal [Unknown]
  - Epistaxis [Unknown]
  - Traumatic haemothorax [Fatal]
  - Pneumonia [Unknown]

NARRATIVE: CASE EVENT DATE: 201209
